FAERS Safety Report 6014861-6 (Version None)
Quarter: 2008Q4

REPORT INFORMATION
  Report Type: 
  Country: None (occurrence: None)
  Receive Date: 20081219
  Receipt Date: 20081215
  Transmission Date: 20090506
  Serious: Yes (Hospitalization)
  Sender: FDA-Public Use
  Company Number: TR-ROXANE LABORATORIES, INC.-2008-RO-00430RO

PATIENT
  Age: 39 Year
  Sex: Female

DRUGS (2)
  1. LITHIUM CARBONATE [Suspect]
     Indication: MANIA
  2. ZIPRASIDONE HCL [Suspect]
     Indication: MANIA
     Route: 030

REACTIONS (2)
  - ELECTROCARDIOGRAM CHANGE [None]
  - THERAPEUTIC AGENT TOXICITY [None]
